FAERS Safety Report 6536767-6 (Version None)
Quarter: 2010Q1

REPORT INFORMATION
  Report Type: 
  Country: None (occurrence: None)
  Receive Date: 20100105
  Receipt Date: 20091223
  Transmission Date: 20100710
  Serious: Yes (Hospitalization)
  Sender: FDA-Public Use
  Company Number: 2008-178668-NL

PATIENT
  Age: 47 Year
  Sex: Male

DRUGS (2)
  1. DECA-DURABOLIN [Suspect]
     Indication: MUSCLE BUILDING THERAPY
     Dosage: 300 MG; QW;
  2. SUSTANON 250 (SUSTANON /00593501/) [Suspect]
     Indication: MUSCLE BUILDING THERAPY
     Dosage: 300 MG; QW;

REACTIONS (6)
  - DYSPHONIA [None]
  - DYSPNOEA [None]
  - LARYNGITIS [None]
  - OBSTRUCTIVE AIRWAYS DISORDER [None]
  - STRIDOR [None]
  - VOCAL CORD POLYP [None]
